FAERS Safety Report 25132726 (Version 1)
Quarter: 2025Q1

REPORT INFORMATION
  Report Type: Report from Study
  Country: CA (occurrence: CA)
  Receive Date: 20250328
  Receipt Date: 20250328
  Transmission Date: 20250409
  Serious: Yes (Other)
  Sender: ABBVIE
  Company Number: CA-ABBVIE-6197613

PATIENT
  Age: 58 Year
  Sex: Male

DRUGS (2)
  1. SKYRIZI [Suspect]
     Active Substance: RISANKIZUMAB-RZAA
     Indication: Ischaemic heart disease prophylaxis
     Route: 042
     Dates: start: 20240913
  2. IRON [Concomitant]
     Active Substance: IRON
     Indication: Ischaemic heart disease prophylaxis
     Route: 048
     Dates: start: 20210303

REACTIONS (3)
  - Haemoglobin abnormal [Recovering/Resolving]
  - Rectal haemorrhage [Recovered/Resolved]
  - Abdominal pain [Recovered/Resolved]

NARRATIVE: CASE EVENT DATE: 20250301
